FAERS Safety Report 18585354 (Version 1)
Quarter: 2020Q4

REPORT INFORMATION
  Report Type: Spontaneous
  Country: US (occurrence: US)
  Receive Date: 20201204
  Receipt Date: 20201204
  Transmission Date: 20210114
  Serious: Yes (Other)
  Sender: FDA-Public Use
  Company Number: None

PATIENT
  Age: 57 Year
  Sex: Female
  Weight: 74.25 kg

DRUGS (8)
  1. MAGNESIUM [Concomitant]
     Active Substance: MAGNESIUM
  2. EMGALITY [Suspect]
     Active Substance: GALCANEZUMAB-GNLM
     Indication: MIGRAINE
     Dosage: ?          QUANTITY:2 INJECTION(S);OTHER FREQUENCY:MONTHLY;?
     Route: 058
     Dates: start: 20201202, end: 20201204
  3. AIMOVIG [Suspect]
     Active Substance: ERENUMAB-AOOE
  4. LIOTHYRONINE [Concomitant]
     Active Substance: LIOTHYRONINE
  5. TIROSINT [Concomitant]
     Active Substance: LEVOTHYROXINE SODIUM
  6. CYMBALTA [Concomitant]
     Active Substance: DULOXETINE HYDROCHLORIDE
  7. VYVANSE [Concomitant]
     Active Substance: LISDEXAMFETAMINE DIMESYLATE
  8. TROKENDI [Concomitant]
     Active Substance: TOPIRAMATE

REACTIONS (7)
  - Abdominal pain upper [None]
  - Mobility decreased [None]
  - Headache [None]
  - Influenza [None]
  - Migraine [None]
  - Fatigue [None]
  - Abdominal distension [None]

NARRATIVE: CASE EVENT DATE: 20201202
